FAERS Safety Report 6408940-9 (Version None)
Quarter: 2009Q4

REPORT INFORMATION
  Report Type: 
  Country: None (occurrence: None)
  Receive Date: 20091021
  Receipt Date: 20081008
  Transmission Date: 20100525
  Serious: No
  Sender: FDA-Public Use
  Company Number: US-ASTRAZENECA-2008UW19910

PATIENT
  Age: 23 Year
  Sex: Female

DRUGS (12)
  1. MERREM [Suspect]
     Indication: INFECTION
     Dosage: 2 GM/100CC
     Route: 042
  2. CIPRO [Concomitant]
  3. ZITHROMAX [Concomitant]
  4. VITAMIN E [Concomitant]
  5. ALBUTEROL [Concomitant]
  6. PULMOZYME [Concomitant]
  7. JANUVIA [Concomitant]
  8. ULTRASE MT20 [Concomitant]
  9. MT20 [Concomitant]
  10. PREDNISONE [Concomitant]
  11. CHOLYMYCIN [Concomitant]
  12. ZYVOX [Concomitant]

REACTIONS (3)
  - PRODUCT QUALITY ISSUE [None]
  - PRURITUS [None]
  - URTICARIA [None]
